FAERS Safety Report 22530244 (Version 1)
Quarter: 2023Q2

REPORT INFORMATION
  Report Type: Spontaneous
  Country: US (occurrence: None)
  Receive Date: 20230606
  Receipt Date: 20230606
  Transmission Date: 20230721
  Serious: No
  Sender: FDA-Public Use
  Company Number: None

PATIENT
  Age: 61 Year
  Sex: Male
  Weight: 99 kg

DRUGS (4)
  1. TIZANIDINE [Suspect]
     Active Substance: TIZANIDINE
     Indication: Back disorder
     Dosage: OTHER QUANTITY : 1 TABLET(S);?FREQUENCY : EVERY 6 HOURS;?
     Route: 048
     Dates: end: 20230606
  2. LABETALOL [Concomitant]
     Active Substance: LABETALOL\LABETALOL HYDROCHLORIDE
  3. IRBESARTAN [Concomitant]
     Active Substance: IRBESARTAN
  4. TAMSULOSIN [Concomitant]
     Active Substance: TAMSULOSIN

REACTIONS (1)
  - Product dispensing error [None]

NARRATIVE: CASE EVENT DATE: 20230423
